FAERS Safety Report 6423965-5 (Version None)
Quarter: 2009Q4

REPORT INFORMATION
  Report Type: 
  Country: None (occurrence: None)
  Receive Date: 20091102
  Receipt Date: 20091023
  Transmission Date: 20100525
  Serious: Yes (Other)
  Sender: FDA-Public Use
  Company Number: PHEH2009US13876

PATIENT
  Sex: Female

DRUGS (10)
  1. EXJADE [Suspect]
     Indication: IRON OVERLOAD
     Dosage: 1000 MG, QD
     Route: 048
     Dates: start: 20080219, end: 20091006
  2. EXJADE [Suspect]
     Indication: MYELOFIBROSIS
  3. ARANESP [Concomitant]
     Indication: ANAEMIA
  4. LASIX [Concomitant]
     Dosage: 40 MG, QW
     Route: 048
  5. VICODIN [Concomitant]
     Dosage: UNK, PRN
     Route: 048
  6. NORVASC [Concomitant]
     Dosage: 5 MG, QD
     Route: 048
  7. DOXAZOSIN MESYLATE [Concomitant]
     Dosage: 4 MG, QD
     Route: 048
  8. HYDRALAZINE HCL [Concomitant]
     Dosage: 50 MG, QD
     Route: 048
  9. AMARYL [Concomitant]
     Dosage: 4 MG, QD
     Route: 048
  10. SYNTHROID [Concomitant]
     Dosage: 100 UG, QD
     Route: 048

REACTIONS (5)
  - ANAEMIA [None]
  - BLOOD CREATININE INCREASED [None]
  - BLOOD UREA INCREASED [None]
  - RENAL IMPAIRMENT [None]
  - SERUM FERRITIN INCREASED [None]
